FAERS Safety Report 9075082 (Version 1)
Quarter: 2013Q1

REPORT INFORMATION
  Report Type: Report from Study
  Country: US (occurrence: US)
  Receive Date: 20130129
  Receipt Date: 20130129
  Transmission Date: 20140127
  Serious: No
  Sender: FDA-Public Use
  Company Number: US-ABBOTT-12P-163-0921643-00

PATIENT
  Age: 64 Year
  Sex: Male

DRUGS (7)
  1. HUMIRA 40 MG/0.8 ML PEN [Suspect]
     Indication: CROHN^S DISEASE
     Dosage: LOADING DOSE
     Dates: start: 20120329
  2. SIMVASTATIN [Concomitant]
     Indication: PRODUCT USED FOR UNKNOWN INDICATION
     Dosage: 40 MG, ONCE A DAY
  3. BUDESONIDE [Concomitant]
     Indication: PRODUCT USED FOR UNKNOWN INDICATION
     Dosage: 3 MG, 3 CAPS ONCE A DAY
  4. NORTRIPTYLINE [Concomitant]
     Indication: DEPRESSION
     Dosage: 2 TABS AT NIGHT
  5. NORTRIPTYLINE [Concomitant]
     Indication: ANXIETY
  6. XANAX [Concomitant]
     Indication: ANXIETY
  7. ATENOLOL [Concomitant]
     Indication: HYPERTENSION
     Dosage: 50 MG, ONCE A DAY

REACTIONS (1)
  - Drug ineffective [Recovering/Resolving]
